FAERS Safety Report 10083623 (Version 1)
Quarter: 2014Q2

REPORT INFORMATION
  Report Type: Spontaneous
  Country: IT (occurrence: None)
  Receive Date: 20140415
  Receipt Date: 20140415
  Transmission Date: 20141212
  Serious: Yes (Hospitalization)
  Sender: FDA-Public Use
  Company Number: 2014AP002567

PATIENT
  Age: 74 Year
  Sex: Male

DRUGS (3)
  1. AMLODIPINE [Suspect]
     Indication: HYPERTENSION
     Route: 048
     Dates: start: 20090101, end: 20140226
  2. ACE INHIBITORS (ACE INHIBITORS) [Suspect]
  3. THIAZIDE (HYDROCHLOROTHIAZIDE) [Concomitant]

REACTIONS (6)
  - Nausea [None]
  - Vomiting [None]
  - Abdominal pain upper [None]
  - Asthenia [None]
  - Hyperpyrexia [None]
  - Pleural effusion [None]
